FAERS Safety Report 4452560-2 (Version None)
Quarter: 2004Q3

REPORT INFORMATION
  Report Type: 
  Country: None (occurrence: None)
  Receive Date: 20040916
  Receipt Date: 20040906
  Transmission Date: 20050211
  Serious: Yes (Life-Threatening, Hospitalization)
  Sender: FDA-Public Use
  Company Number: 2004229508FR

PATIENT
  Age: 59 Year
  Sex: Female
  Weight: 59 kg

DRUGS (5)
  1. ALDACTONE [Suspect]
     Dosage: 25 MG, DAILY, ORAL
     Route: 048
     Dates: end: 20040702
  2. HYDROCHLOROTHIAZIDE [Suspect]
     Dosage: 1 DFM DAILY, ORAL
     Route: 048
     Dates: end: 20040702
  3. ALDALIX (SPIRONOLACTONE, FUROSEMIDE) TABLET [Suspect]
     Dosage: SEE IMAGE
     Route: 048
     Dates: end: 20040702
  4. RAMIPRIL [Suspect]
     Dosage: 2.5 MG, DAILY,ORAL
     Route: 048
     Dates: end: 20040702
  5. AMAREL (GLIMEPRIDIE) [Concomitant]

REACTIONS (4)
  - DEHYDRATION [None]
  - GENERAL PHYSICAL HEALTH DETERIORATION [None]
  - HYPOTENSION [None]
  - RENAL FAILURE ACUTE [None]
